FAERS Safety Report 4497983-0 (Version None)
Quarter: 2004Q4

REPORT INFORMATION
  Report Type: 
  Country: None (occurrence: None)
  Receive Date: 20041105
  Receipt Date: 20041102
  Transmission Date: 20050328
  Serious: Yes (Death)
  Sender: FDA-Public Use
  Company Number: KII-2002-0002934

PATIENT

DRUGS (1)
  1. OXYCONTIN [Suspect]

REACTIONS (1)
  - DEATH [None]
